FAERS Safety Report 9057859 (Version 1)
Quarter: 2013Q1

REPORT INFORMATION
  Report Type: Spontaneous
  Country: US (occurrence: None)
  Receive Date: 20130204
  Receipt Date: 20130204
  Transmission Date: 20140127
  Serious: No
  Sender: FDA-Public Use
  Company Number: None

PATIENT
  Age: 71 Year
  Sex: Female

DRUGS (1)
  1. SUTENT 50MG [Suspect]
     Route: 048
     Dates: start: 20121228, end: 20130116

REACTIONS (4)
  - Hypertension [None]
  - Local swelling [None]
  - Joint swelling [None]
  - Scab [None]
